FAERS Safety Report 11835690 (Version 3)
Quarter: 2016Q1

REPORT INFORMATION
  Report Type: Spontaneous
  Country: GB (occurrence: GB)
  Receive Date: 20151215
  Receipt Date: 20160108
  Transmission Date: 20160525
  Serious: Yes (Life-Threatening, Hospitalization, Other)
  Sender: FDA-Public Use
  Company Number: GB-BIOVITRUM-2015GB0733

PATIENT
  Age: 4 Year
  Sex: Female
  Weight: 30 kg

DRUGS (4)
  1. ORFADIN [Suspect]
     Active Substance: NITISINONE
     Indication: TYROSINAEMIA
     Dosage: 19MG PER DAY (10MG AND 9MG, MORNING AND EVENING RESPECTIVELY)
  2. HYDROCORTISONE. [Concomitant]
     Active Substance: HYDROCORTISONE
     Indication: BLOOD CORTISOL ABNORMAL
     Dosage: 5 MG, 2.5 MG, 2.5 MG
     Route: 048
     Dates: start: 201509
  3. DDAVP [Concomitant]
     Active Substance: DESMOPRESSIN ACETATE
     Indication: INAPPROPRIATE ANTIDIURETIC HORMONE SECRETION
     Dosage: 90 MCG, 60 MCG, 120 MCG
     Route: 048
     Dates: start: 201509
  4. THYROXINE [Concomitant]
     Active Substance: LEVOTHYROXINE
     Indication: THYROID HORMONE REPLACEMENT THERAPY
     Route: 048
     Dates: start: 201509

REACTIONS (4)
  - Diabetes insipidus [Recovered/Resolved]
  - Tonsillitis [Unknown]
  - Craniopharyngioma [Recovered/Resolved with Sequelae]
  - Hydrocephalus [Recovered/Resolved]

NARRATIVE: CASE EVENT DATE: 201508
